FAERS Safety Report 8100475-0 (Version None)
Quarter: 2012Q1

REPORT INFORMATION
  Report Type: 
  Country: None (occurrence: None)
  Receive Date: 20120129
  Receipt Date: 20111116
  Transmission Date: 20120608
  Serious: No
  Sender: FDA-Public Use
  Company Number: US-ABBOTT-11P-163-0870535-00

PATIENT
  Sex: Female
  Weight: 93.978 kg

DRUGS (6)
  1. CYMBALTA [Concomitant]
     Indication: ANXIETY
  2. ATENOLOL [Concomitant]
     Indication: HYPERTENSION
  3. HUMIRA [Suspect]
     Indication: PSORIATIC ARTHROPATHY
  4. HUMIRA [Suspect]
     Indication: PSORIASIS
     Dates: start: 20110101, end: 20110101
  5. NEXIUM [Concomitant]
     Indication: ANTACID THERAPY
  6. LIPITOR [Concomitant]
     Indication: BLOOD CHOLESTEROL INCREASED

REACTIONS (4)
  - ASTHENIA [None]
  - RED BLOOD CELL COUNT DECREASED [None]
  - FATIGUE [None]
  - BLOOD IRON DECREASED [None]
